FAERS Safety Report 9161270 (Version 2)
Quarter: 2013Q2

REPORT INFORMATION
  Report Type: Report from Study
  Country: US (occurrence: US)
  Receive Date: 20130313
  Receipt Date: 20130402
  Transmission Date: 20140414
  Serious: Yes (Other)
  Sender: FDA-Public Use
  Company Number: US-US-EMD SERONO, INC.-7169621

PATIENT
  Age: 47 Year
  Sex: Male

DRUGS (4)
  1. REBIF [Suspect]
     Indication: PRODUCT USED FOR UNKNOWN INDICATION
     Route: 058
     Dates: start: 20120425, end: 201212
  2. REBIF [Suspect]
     Route: 058
     Dates: start: 20130204
  3. REBIF [Suspect]
     Route: 057
     Dates: start: 201303
  4. CORTISONE [Concomitant]
     Indication: BURSITIS

REACTIONS (4)
  - Spinal column stenosis [Recovering/Resolving]
  - Bursitis [Not Recovered/Not Resolved]
  - Fatigue [Recovered/Resolved]
  - Pain [Recovered/Resolved]
